FAERS Safety Report 15807825 (Version 2)
Quarter: 2019Q1

REPORT INFORMATION
  Report Type: Spontaneous
  Country: CA (occurrence: CA)
  Receive Date: 20190110
  Receipt Date: 20190130
  Transmission Date: 20190417
  Serious: Yes (Other)
  Sender: FDA-Public Use
  Company Number: CA-PFIZER INC-2019011692

PATIENT
  Age: 67 Year
  Sex: Female

DRUGS (8)
  1. FENTANYL. [Concomitant]
     Active Substance: FENTANYL
     Indication: SEDATION
     Dosage: 75 MCG ONCE
     Route: 042
     Dates: start: 20181113, end: 20181113
  2. PENTASA [Suspect]
     Active Substance: MESALAMINE
     Dosage: 4 G, UNK
  3. SYNTHROID [Concomitant]
     Active Substance: LEVOTHYROXINE SODIUM
     Dosage: 0.5 MG, UNK
  4. LEVOCARB [Concomitant]
     Active Substance: CARBIDOPA\LEVODOPA
     Dosage: 200/50 MG, 4X/DAY
  5. ATORVASTATIN CALCIUM. [Suspect]
     Active Substance: ATORVASTATIN CALCIUM
     Dosage: 10 MG, UNK
  6. ZANTAC [Concomitant]
     Active Substance: RANITIDINE HYDROCHLORIDE
     Dosage: 75 MG, UNK
  7. VERSED [Concomitant]
     Active Substance: MIDAZOLAM HYDROCHLORIDE
     Indication: SEDATION
     Dosage: 3 MG, ONCE
     Route: 042
     Dates: start: 20181113, end: 20181113
  8. OLESTYR [Concomitant]
     Active Substance: CHOLESTYRAMINE
     Dosage: 1 DF (PKG), 1X/DAY

REACTIONS (8)
  - Anaemia [Not Recovered/Not Resolved]
  - Iron deficiency [Not Recovered/Not Resolved]
  - Frequent bowel movements [Not Recovered/Not Resolved]
  - Hypothyroidism [Not Recovered/Not Resolved]
  - Crohn^s disease [Unknown]
  - Arthralgia [Not Recovered/Not Resolved]
  - Parkinson^s disease [Not Recovered/Not Resolved]
  - Feeling abnormal [Not Recovered/Not Resolved]
